FAERS Safety Report 4622620-1 (Version None)
Quarter: 2005Q1

REPORT INFORMATION
  Report Type: 
  Country: None (occurrence: None)
  Receive Date: 20050330
  Receipt Date: 20050315
  Transmission Date: 20050727
  Serious: Yes (Hospitalization)
  Sender: FDA-Public Use
  Company Number: SE-GLAXOSMITHKLINE-B0375076A

PATIENT
  Age: 62 Year
  Sex: Male

DRUGS (10)
  1. ACETAMINOPHEN [Suspect]
     Dosage: 2G PER DAY
     Route: 048
     Dates: start: 20041014, end: 20041016
  2. CLOXACILLIN SODIUM [Suspect]
     Dosage: 6G PER DAY
     Route: 042
     Dates: start: 20041012, end: 20041012
  3. HERACILLIN [Suspect]
     Dosage: 1.5G PER DAY
     Route: 048
     Dates: start: 20041013, end: 20041019
  4. OXYNORM [Concomitant]
  5. TEGRETOL [Concomitant]
  6. SANDIMMUNE [Concomitant]
  7. INSULATARD [Concomitant]
  8. NORVASC [Concomitant]
  9. TENORMIN [Concomitant]
  10. OXYCONTIN [Concomitant]
     Indication: PAIN

REACTIONS (4)
  - C-REACTIVE PROTEIN INCREASED [None]
  - GAMMA-GLUTAMYLTRANSFERASE INCREASED [None]
  - HEPATIC ENZYME INCREASED [None]
  - TRANSAMINASES INCREASED [None]
